FAERS Safety Report 8886810 (Version 1)
Quarter: 2012Q4

REPORT INFORMATION
  Report Type: 
  Country: CH (occurrence: CH)
  Receive Date: 20121105
  Receipt Date: 20121105
  Transmission Date: 20130627
  Serious: Yes (Hospitalization, Other)
  Sender: FDA-Public Use
  Company Number: CH-PFIZER INC-2012271642

PATIENT
  Age: 74 Year
  Sex: Female

DRUGS (12)
  1. LYRICA [Suspect]
     Dosage: 50 mg, 3x/day (1-0-2)
     Route: 048
  2. LYRICA [Interacting]
     Dosage: 75 mg, 4x/day (2-0-2)
     Route: 048
  3. DUROGESIC [Interacting]
     Dosage: 12 ug/h, 1x/3 days
     Route: 062
     Dates: start: 20120912, end: 20120920
  4. MAGNESIOCARD [Concomitant]
     Dosage: 5 mmol, 1x/day
     Route: 048
     Dates: end: 20121002
  5. COSAAR [Concomitant]
     Dosage: 100 mg, 1x/day
     Route: 048
  6. DAFALGAN [Concomitant]
     Dosage: 500 mg, 4x/day
     Route: 048
     Dates: end: 20121002
  7. NORVASC [Concomitant]
     Dosage: 10 mg, 1x/day
     Route: 048
  8. NOVALGIN [Concomitant]
     Dosage: 500 mg, 8x/day
     Route: 048
  9. TORASEMID [Concomitant]
     Dosage: 10 mg, 2x/day
     Route: 048
  10. ZOLPIDEM [Concomitant]
     Dosage: 10 mg, 1x/day
     Route: 048
  11. VOLTAREN [Concomitant]
     Dosage: 50 mg, 3x/day
     Dates: end: 20121002
  12. FRAGMIN [Concomitant]

REACTIONS (4)
  - Drug interaction [Recovered/Resolved]
  - Ileus [Recovered/Resolved]
  - Renal impairment [Recovered/Resolved]
  - Vomiting projectile [Recovered/Resolved]
